FAERS Safety Report 9916115 (Version 2)
Quarter: 2014Q2

REPORT INFORMATION
  Report Type: Report from Study
  Country: CA (occurrence: CA)
  Receive Date: 20140221
  Receipt Date: 20140611
  Transmission Date: 20141212
  Serious: Yes (Death, Other)
  Sender: FDA-Public Use
  Company Number: CA-BRISTOL-MYERS SQUIBB COMPANY-20194593

PATIENT
  Age: 76 Year
  Sex: Female

DRUGS (12)
  1. ORENCIA [Suspect]
     Indication: RHEUMATOID ARTHRITIS
     Dosage: 1DF: 500 UNIT: NOS
     Dates: start: 20120308, end: 20130206
  2. ATENOLOL [Concomitant]
  3. ABILIFY [Concomitant]
  4. RAMIPRIL [Concomitant]
  5. FOLIC ACID [Concomitant]
  6. GABAPENTIN [Concomitant]
  7. AMLODIPINE [Concomitant]
  8. PLAQUENIL [Concomitant]
  9. VENLAFAXINE HCL [Concomitant]
  10. CALCIUM [Concomitant]
  11. VITAMIN B12 [Concomitant]
  12. OCTREOTIDE [Concomitant]

REACTIONS (2)
  - Death [Fatal]
  - Lower respiratory tract infection [Unknown]
